FAERS Safety Report 21773477 (Version 2)
Quarter: 2025Q2

REPORT INFORMATION
  Report Type: Spontaneous
  Country: BR (occurrence: BR)
  Receive Date: 20221223
  Receipt Date: 20250530
  Transmission Date: 20250717
  Serious: Yes (Life-Threatening, Other)
  Sender: ALEXION PHARMACEUTICALS
  Company Number: 2022A381776

PATIENT
  Age: 23 Year

DRUGS (2)
  1. SYMBICORT [Suspect]
     Active Substance: BUDESONIDE\FORMOTEROL FUMARATE DIHYDRATE
     Indication: Asthmatic crisis
  2. SYMBICORT [Suspect]
     Active Substance: BUDESONIDE\FORMOTEROL FUMARATE DIHYDRATE

REACTIONS (6)
  - Asthmatic crisis [Recovered/Resolved]
  - Asthma [Unknown]
  - Intentional device misuse [Not Recovered/Not Resolved]
  - Off label use [Not Recovered/Not Resolved]
  - Device breakage [Unknown]
  - Device delivery system issue [Unknown]
